FAERS Safety Report 13017251 (Version 2)
Quarter: 2016Q4

REPORT INFORMATION
  Report Type: Spontaneous
  Country: GB (occurrence: GB)
  Receive Date: 20161212
  Receipt Date: 20161227
  Transmission Date: 20170207
  Serious: Yes (Hospitalization, Other)
  Sender: FDA-Public Use
  Company Number: GB-PFIZER INC-2016569539

PATIENT
  Age: 65 Year
  Sex: Male
  Weight: 79 kg

DRUGS (1)
  1. DOXYCYCLINE MONOHYDRATE [Suspect]
     Active Substance: DOXYCYCLINE
     Dosage: 2 100MG TAKEN FIRST AND THEN 1 TO BE TAKEN DAILY.
     Route: 048
     Dates: start: 20161010, end: 20161017

REACTIONS (6)
  - Dyspnoea [Not Recovered/Not Resolved]
  - Skin warm [Not Recovered/Not Resolved]
  - Pruritus [Not Recovered/Not Resolved]
  - Generalised erythema [Not Recovered/Not Resolved]
  - Peripheral swelling [Not Recovered/Not Resolved]
  - Swollen tongue [Not Recovered/Not Resolved]

NARRATIVE: CASE EVENT DATE: 20161010
